FAERS Safety Report 9650319 (Version 2)
Quarter: 2013Q4

REPORT INFORMATION
  Report Type: Spontaneous
  Country: US (occurrence: US)
  Receive Date: 20131028
  Receipt Date: 20131028
  Transmission Date: 20140711
  Serious: No
  Sender: FDA-Public Use
  Company Number: US-PURDUE-USA-2013-0097792

PATIENT
  Sex: Female

DRUGS (2)
  1. OXYCONTIN (NDA 22-272) [Suspect]
     Indication: PAIN
     Dosage: 60 MG, HS
     Route: 048
  2. OXYCONTIN (NDA 22-272) [Suspect]
     Indication: FIBROMYALGIA
     Dosage: 40 MG, BID
     Route: 048

REACTIONS (12)
  - Intentional drug misuse [Unknown]
  - Drug withdrawal syndrome [Unknown]
  - Muscle spasms [Unknown]
  - Panic reaction [Unknown]
  - Feeling of body temperature change [Unknown]
  - Palpitations [Unknown]
  - Cold sweat [Unknown]
  - Nausea [Unknown]
  - Vomiting [Unknown]
  - Hyperhidrosis [Unknown]
  - Anxiety [Unknown]
  - Insomnia [Unknown]
